FAERS Safety Report 4799708-8 (Version None)
Quarter: 2005Q4

REPORT INFORMATION
  Report Type: 
  Country: None (occurrence: None)
  Receive Date: 20051006
  Receipt Date: 20051006
  Transmission Date: 20060501
  Serious: Yes (Life-Threatening, Hospitalization)
  Sender: FDA-Public Use
  Company Number: None

PATIENT
  Age: 42 Year
  Sex: Female

DRUGS (3)
  1. KEFLEX [Suspect]
     Indication: STAPHYLOCOCCAL INFECTION
     Dosage: PO 2-3 X/D
     Route: 048
  2. ESCITALOPRAM OXALATE [Concomitant]
  3. AMLODIPINE [Concomitant]

REACTIONS (2)
  - BLISTER [None]
  - ORAL MUCOSAL BLISTERING [None]
